FAERS Safety Report 6579249-8 (Version None)
Quarter: 2010Q1

REPORT INFORMATION
  Report Type: 
  Country: None (occurrence: None)
  Receive Date: 20100212
  Receipt Date: 20100127
  Transmission Date: 20100710
  Serious: Yes (Death, Other)
  Sender: FDA-Public Use
  Company Number: US-BAYER-200812884GPV

PATIENT
  Age: 36 Year
  Sex: Female

DRUGS (9)
  1. ALEMTUZUMAB [Suspect]
     Indication: CHRONIC LYMPHOCYTIC LEUKAEMIA
     Route: 065
  2. ALEMTUZUMAB [Suspect]
     Route: 065
  3. ALEMTUZUMAB [Suspect]
     Route: 065
  4. ALEMTUZUMAB [Suspect]
     Route: 065
  5. ACETAMINOPHEN [Concomitant]
     Route: 065
  6. DIPHENHYDRAMINE [Concomitant]
     Route: 065
  7. TRIMETHOPRIM + SULFAMETHOXAZOLE [Concomitant]
     Indication: INFECTION PROPHYLAXIS
  8. FLUCONAZOLE [Concomitant]
     Indication: INFECTION PROPHYLAXIS
  9. VALACYCLOVIR HCL [Concomitant]
     Indication: INFECTION PROPHYLAXIS

REACTIONS (7)
  - DYSPNOEA [None]
  - ERYTHEMA [None]
  - HYPOXIA [None]
  - INTERSTITIAL LUNG DISEASE [None]
  - PANCYTOPENIA [None]
  - PARAINFLUENZAE VIRUS INFECTION [None]
  - RESPIRATORY DISTRESS [None]
